FAERS Safety Report 14258710 (Version 3)
Quarter: 2018Q1

REPORT INFORMATION
  Report Type: Spontaneous
  Country: ES (occurrence: ES)
  Receive Date: 20171207
  Receipt Date: 20180323
  Transmission Date: 20180508
  Serious: Yes (Other)
  Sender: FDA-Public Use
  Company Number: ES-ROCHE-2031820

PATIENT
  Age: 6 Year
  Sex: Female

DRUGS (3)
  1. MYCOPHENOLATE MOFETIL. [Suspect]
     Active Substance: MYCOPHENOLATE MOFETIL
     Indication: IMMUNOSUPPRESSANT DRUG THERAPY
     Route: 065
  2. CYCLOSPORINE. [Suspect]
     Active Substance: CYCLOSPORINE
     Indication: IMMUNOSUPPRESSANT DRUG THERAPY
     Route: 065
  3. PREDNISONE. [Suspect]
     Active Substance: PREDNISONE
     Indication: IMMUNOSUPPRESSANT DRUG THERAPY
     Route: 065

REACTIONS (8)
  - Toxicity to various agents [Unknown]
  - Asthenia [Recovering/Resolving]
  - Neutrophilia [Unknown]
  - Cytomegalovirus test positive [Unknown]
  - Pain in extremity [Unknown]
  - Acute polyneuropathy [Recovering/Resolving]
  - Areflexia [Unknown]
  - Coxsackie virus test positive [Unknown]
